FAERS Safety Report 5046587-X (Version None)
Quarter: 2006Q3

REPORT INFORMATION
  Report Type: 
  Country: None (occurrence: None)
  Receive Date: 20060705
  Receipt Date: 20060705
  Transmission Date: 20061208
  Serious: Yes (Hospitalization)
  Sender: FDA-Public Use
  Company Number: None

PATIENT
  Sex: Female
  Weight: 72.4 kg

DRUGS (5)
  1. BUSULFAN [Suspect]
     Dosage: 12.8 MG
  2. CYCLOPHOSPHAMIDE [Suspect]
     Dosage: 3492 MG
  3. CYTARABINE [Suspect]
     Dosage: 1253 MG
  4. DAUNORUBICIN HCL [Suspect]
     Dosage: 240 MG
  5. GEMTUZMAB OZOGAMICIN (MYLOTARG) [Suspect]
     Dosage: 10.7 MG

REACTIONS (9)
  - ALANINE AMINOTRANSFERASE INCREASED [None]
  - ASPARTATE AMINOTRANSFERASE INCREASED [None]
  - ASTHENIA [None]
  - DYSURIA [None]
  - EPISTAXIS [None]
  - FAECES DISCOLOURED [None]
  - FATIGUE [None]
  - HAEMOGLOBIN DECREASED [None]
  - PLATELET COUNT DECREASED [None]
